FAERS Safety Report 4872503-7 (Version None)
Quarter: 2005Q4

REPORT INFORMATION
  Report Type: 
  Country: None (occurrence: None)
  Receive Date: 20051230
  Receipt Date: 20051230
  Transmission Date: 20060501
  Serious: Yes (Hospitalization, Other)
  Sender: FDA-Public Use
  Company Number: None

PATIENT
  Sex: Female
  Weight: 102.6 kg

DRUGS (4)
  1. CISPLATIN [Suspect]
     Indication: SMALL CELL LUNG CANCER STAGE UNSPECIFIED
     Dosage: SEE IMAGE
     Route: 042
     Dates: start: 20050928, end: 20051019
  2. CISPLATIN [Suspect]
     Indication: SMALL CELL LUNG CANCER STAGE UNSPECIFIED
     Dosage: SEE IMAGE
     Route: 042
     Dates: start: 20051019
  3. ETOPOSIDE [Suspect]
     Dosage: SEE IMAGE
     Route: 042
     Dates: start: 20050928, end: 20051019
  4. ETOPOSIDE [Suspect]
     Dosage: SEE IMAGE
     Route: 042
     Dates: start: 20051019, end: 20051019

REACTIONS (8)
  - ANAEMIA [None]
  - BONE MARROW FAILURE [None]
  - CANDIDIASIS [None]
  - FEBRILE NEUTROPENIA [None]
  - ODYNOPHAGIA [None]
  - PERIPHERAL VASCULAR DISORDER [None]
  - RADIATION INJURY [None]
  - THROMBOCYTOPENIA [None]
